FAERS Safety Report 10211307 (Version 1)
Quarter: 2014Q2

REPORT INFORMATION
  Report Type: Spontaneous
  Country: US (occurrence: US)
  Receive Date: 20140602
  Receipt Date: 20140602
  Transmission Date: 20141212
  Serious: No
  Sender: FDA-Public Use
  Company Number: US-BAYER-2014-081546

PATIENT
  Age: 84 Year
  Sex: Female
  Weight: 73 kg

DRUGS (3)
  1. ALEVE TABLET [Suspect]
     Indication: ANALGESIC THERAPY
     Dosage: 2 DF, QD WITH FOOD
     Route: 048
     Dates: start: 201404
  2. METFORMIN [Concomitant]
  3. GLIPIZIDE [Concomitant]

REACTIONS (5)
  - Intentional product misuse [Unknown]
  - Vertigo [Recovered/Resolved]
  - Fall [Recovered/Resolved]
  - Incorrect drug administration duration [Recovered/Resolved]
  - Intentional product misuse [Unknown]
